FAERS Safety Report 18795737 (Version 1)
Quarter: 2021Q1

REPORT INFORMATION
  Report Type: Spontaneous
  Country: CA (occurrence: CA)
  Receive Date: 20210127
  Receipt Date: 20210127
  Transmission Date: 20210419
  Serious: Yes (Death, Hospitalization)
  Sender: FDA-Public Use
  Company Number: CA-TEVA-2021-CA-1871818

PATIENT
  Age: 60 Year
  Sex: Male

DRUGS (1)
  1. CARBOPLATIN. [Suspect]
     Active Substance: CARBOPLATIN
     Indication: PRODUCT USED FOR UNKNOWN INDICATION
     Dosage: SOLUTION INTRAVENOUS
     Route: 013

REACTIONS (10)
  - Dysgeusia [Fatal]
  - Off label use [Fatal]
  - Hypophagia [Fatal]
  - Neoplasm progression [Fatal]
  - Quality of life decreased [Fatal]
  - Taste disorder [Fatal]
  - Product use issue [Fatal]
  - Nausea [Fatal]
  - Weight decreased [Fatal]
  - General physical health deterioration [Fatal]
